FAERS Safety Report 15010340 (Version 2)
Quarter: 2018Q3

REPORT INFORMATION
  Report Type: Spontaneous
  Country: US (occurrence: US)
  Receive Date: 20180614
  Receipt Date: 20180704
  Transmission Date: 20181010
  Serious: Yes (Hospitalization, Other)
  Sender: FDA-Public Use
  Company Number: US-LUPIN PHARMACEUTICALS INC.-2018-04355

PATIENT
  Age: 51 Year
  Sex: Male

DRUGS (3)
  1. TRIAMCINOLONE ACETONIDE. [Suspect]
     Active Substance: TRIAMCINOLONE ACETONIDE
     Indication: OSTEOARTHRITIS
     Dosage: UNK UNK, SINGLE
     Route: 014
  2. LISINOPRIL. [Suspect]
     Active Substance: LISINOPRIL
     Indication: HYPERTENSION
     Dosage: UNK
     Route: 065
  3. LISINOPRIL. [Suspect]
     Active Substance: LISINOPRIL
     Indication: DIABETIC NEPHROPATHY

REACTIONS (6)
  - Hyperkalaemia [Unknown]
  - Hypoglycaemia [Unknown]
  - Hypotension [Unknown]
  - Adrenal insufficiency [Unknown]
  - Hyponatraemia [Unknown]
  - Acute kidney injury [Unknown]
